FAERS Safety Report 7983455-5 (Version None)
Quarter: 2011Q4

REPORT INFORMATION
  Report Type: 
  Country: None (occurrence: None)
  Receive Date: 20111215
  Receipt Date: 20111208
  Transmission Date: 20120403
  Serious: Yes (Other)
  Sender: FDA-Public Use
  Company Number: US-BAYER-2011-005757

PATIENT
  Age: 55 Year
  Sex: Male
  Weight: 113 kg

DRUGS (33)
  1. TRASYLOL [Suspect]
     Indication: AORTIC VALVE REPAIR
     Dosage: 200 ML BOLUS THEN 50 ML PER HOUR
     Route: 042
     Dates: start: 20071012, end: 20071012
  2. ATIVAN [Concomitant]
     Dosage: 4
     Dates: start: 20071012
  3. DEMADEX [Concomitant]
     Dosage: UNK
     Dates: start: 20071015
  4. NORVASC [Concomitant]
     Dosage: 10 MG, QID
     Route: 048
     Dates: start: 20070717
  5. AMIODARONE HCL [Concomitant]
  6. FENTANYL [Concomitant]
     Dosage: 40
     Dates: start: 20071012
  7. PRAVASTATIN [Concomitant]
     Dosage: 10 MG, QD
  8. NORVASC [Concomitant]
     Dosage: 10 MG, QID
     Route: 048
  9. RYTHMOL [Concomitant]
     Dosage: 150 MG, TID
     Route: 048
  10. CEFAZOLIN [Concomitant]
     Dosage: 2 G, TID
     Route: 042
     Dates: start: 20070716
  11. NITROGLYCERIN [Concomitant]
     Dosage: UNK
     Route: 042
     Dates: start: 20070716
  12. VERSED [Concomitant]
     Dosage: 10 MG
     Route: 042
     Dates: start: 20071012
  13. DIURIL [Concomitant]
     Dosage: UNK
     Dates: start: 20071012
  14. PLATELETS [Concomitant]
     Dosage: 20 UNITS
     Route: 042
  15. ATENOLOL [Concomitant]
     Dosage: 50 MG, QID
     Route: 048
  16. TRASYLOL [Suspect]
     Indication: AORTIC BYPASS
     Dosage: 1 ML INITIAL (TEST) DOSE
     Route: 042
     Dates: start: 20071012, end: 20071012
  17. HYDROCHLOROTHIAZIDE [Concomitant]
     Dosage: 12.5 MG, QID
     Route: 048
  18. LASIX [Concomitant]
     Dosage: 40 MG
     Route: 042
     Dates: start: 20070717
  19. LEVAQUIN [Concomitant]
     Dosage: 500 MG, QID
     Route: 048
     Dates: start: 20070721
  20. ACETYLSALICYLIC ACID SRT [Concomitant]
  21. VALIUM [Concomitant]
     Dosage: 5 MG, UNK
  22. TRASYLOL [Suspect]
     Dosage: 200 ML, PUMP PRIME DOSE
     Route: 042
     Dates: start: 20071012, end: 20071012
  23. VERAPAMIL [Concomitant]
     Dosage: 240 MG, BID
     Route: 048
  24. LOPRESSOR [Concomitant]
     Dosage: 100 MG, BID
     Route: 048
  25. CRESTOR [Concomitant]
     Dosage: 10 MG, QID
     Route: 048
  26. CRYOPRECIPITATES [Concomitant]
     Dosage: 20 UNITS
     Route: 042
  27. PROPOXYPHENE HYDROCHLORIDE [Concomitant]
     Dosage: 150 MG, QD
  28. BACTROBAN [Concomitant]
     Dosage: UNK
     Dates: start: 20071012
  29. FRESH FROZEN PLASMA [Concomitant]
     Dosage: 8 UNITS
     Route: 042
  30. CLONIDINE [Concomitant]
     Dosage: 0.3 MG, TID
     Route: 048
  31. LOVENOX [Concomitant]
     Dosage: 40 MG EVERY 12 HOURS
     Route: 058
     Dates: start: 20070718
  32. HEPARIN [Concomitant]
     Dosage: 20000
     Dates: start: 20071012
  33. INSULIN [Concomitant]
     Dosage: UNK
     Route: 042
     Dates: start: 20071012

REACTIONS (11)
  - RENAL FAILURE [None]
  - PSYCHOLOGICAL TRAUMA [None]
  - EMOTIONAL DISTRESS [None]
  - FEAR [None]
  - PAIN [None]
  - ANXIETY [None]
  - UNEVALUABLE EVENT [None]
  - INJURY [None]
  - STRESS [None]
  - RENAL IMPAIRMENT [None]
  - RENAL INJURY [None]
